FAERS Safety Report 18019144 (Version 1)
Quarter: 2020Q3

REPORT INFORMATION
  Report Type: Spontaneous
  Country: US (occurrence: US)
  Receive Date: 20200713
  Receipt Date: 20200713
  Transmission Date: 20201103
  Serious: Yes (Disabling)
  Sender: FDA-Public Use
  Company Number: None

PATIENT
  Age: 35 Year
  Sex: Female
  Weight: 54.9 kg

DRUGS (4)
  1. MAGNESIUM [Concomitant]
     Active Substance: MAGNESIUM
  2. CARTIA [Concomitant]
  3. NURTEC ODT [Concomitant]
     Active Substance: RIMEGEPANT SULFATE
  4. AJOVY [Suspect]
     Active Substance: FREMANEZUMAB-VFRM
     Indication: MIGRAINE
     Dosage: ?          QUANTITY:1 INJECTION(S);OTHER FREQUENCY:ONCE A MONTH;?
     Route: 058
     Dates: start: 20200511, end: 20200713

REACTIONS (12)
  - Facial pain [None]
  - Head discomfort [None]
  - Inflammation [None]
  - Urticaria [None]
  - Headache [None]
  - Paraesthesia [None]
  - Anxiety [None]
  - Neck pain [None]
  - Hypoaesthesia [None]
  - Musculoskeletal discomfort [None]
  - Pyrexia [None]
  - Erythema [None]

NARRATIVE: CASE EVENT DATE: 20200513
